FAERS Safety Report 20226999 (Version 4)
Quarter: 2022Q2

REPORT INFORMATION
  Report Type: Report from Study
  Country: CO (occurrence: CO)
  Receive Date: 20211224
  Receipt Date: 20220406
  Transmission Date: 20220721
  Serious: Yes (Other)
  Sender: FDA-Public Use
  Company Number: CO-NOVARTISPH-NVSC2020CO077223

PATIENT
  Age: 41 Year
  Sex: Female
  Weight: 69 kg

DRUGS (4)
  1. XOLAIR [Suspect]
     Active Substance: OMALIZUMAB
     Indication: Asthma
     Dosage: 300 MG, QMO
     Route: 058
     Dates: start: 20170329
  2. XOLAIR [Suspect]
     Active Substance: OMALIZUMAB
     Dosage: 300 MG, QMO
     Route: 058
  3. ALBUTEROL [Suspect]
     Active Substance: ALBUTEROL
     Indication: Asthma
     Dosage: UNK (AT NEED)
     Route: 048
  4. SYMBICORT [Concomitant]
     Active Substance: BUDESONIDE\FORMOTEROL FUMARATE DIHYDRATE
     Indication: Asthma
     Dosage: UNK, Q12H
     Route: 048

REACTIONS (14)
  - Appendix disorder [Unknown]
  - Abdominal adhesions [Unknown]
  - Asthmatic crisis [Unknown]
  - Sneezing [Recovered/Resolved]
  - Oropharyngeal pain [Recovered/Resolved]
  - Illness [Unknown]
  - Hypersensitivity [Unknown]
  - Malaise [Unknown]
  - Hypersensitivity [Recovered/Resolved]
  - Pruritus [Recovered/Resolved]
  - Nasal congestion [Unknown]
  - Fatigue [Unknown]
  - Asthma [Unknown]
  - Product dose omission issue [Unknown]

NARRATIVE: CASE EVENT DATE: 20200301
